FAERS Safety Report 4480470-3 (Version None)
Quarter: 2004Q4

REPORT INFORMATION
  Report Type: 
  Country: None (occurrence: None)
  Receive Date: 20041018
  Receipt Date: 20041008
  Transmission Date: 20050328
  Serious: Yes (Other)
  Sender: FDA-Public Use
  Company Number: S04-USA-05504-01

PATIENT
  Age: 70 Year
  Sex: Female

DRUGS (3)
  1. NAMENDA [Suspect]
     Indication: COGNITIVE DISORDER
  2. NAMENDA [Suspect]
     Indication: COGNITIVE DISORDER
     Dates: start: 20040901
  3. ARICEPT [Suspect]
     Indication: COGNITIVE DISORDER

REACTIONS (4)
  - COGNITIVE DISORDER [None]
  - CONDITION AGGRAVATED [None]
  - MENTAL STATUS CHANGES [None]
  - PARKINSON'S DISEASE [None]
